FAERS Safety Report 7734935-9 (Version None)
Quarter: 2011Q3

REPORT INFORMATION
  Report Type: 
  Country: None (occurrence: None)
  Receive Date: 20110907
  Receipt Date: 20110905
  Transmission Date: 20111222
  Serious: Yes (Life-Threatening, Other)
  Sender: FDA-Public Use
  Company Number: PHHY2011BR78903

PATIENT
  Sex: Female

DRUGS (1)
  1. FORMOTEROL FUMARATE [Suspect]
     Indication: ASTHMA

REACTIONS (4)
  - DYSPNOEA [None]
  - PULMONARY OEDEMA [None]
  - INCORRECT DOSE ADMINISTERED [None]
  - BRONCHITIS [None]
